FAERS Safety Report 10232488 (Version 2)
Quarter: 2014Q2

REPORT INFORMATION
  Report Type: Report from Study
  Country: CA (occurrence: CA)
  Receive Date: 20140612
  Receipt Date: 20140619
  Transmission Date: 20141212
  Serious: Yes (Hospitalization, Other)
  Sender: FDA-Public Use
  Company Number: CA-JNJFOC-20140602590

PATIENT
  Age: 50 Year
  Sex: Male
  Weight: 138 kg

DRUGS (2)
  1. REMICADE [Suspect]
     Indication: CROHN^S DISEASE
     Dosage: 700 MG ONCE IN EVERY 8 WEEKS FOR 52 WEEKS
     Route: 042
     Dates: start: 20060406
  2. BENADRYL [Concomitant]
     Indication: PREMEDICATION
     Route: 048

REACTIONS (2)
  - Lung neoplasm malignant [Unknown]
  - Localised infection [Unknown]
